FAERS Safety Report 15240579 (Version 1)
Quarter: 2018Q3

REPORT INFORMATION
  Report Type: Spontaneous
  Country: CH (occurrence: CH)
  Receive Date: 20180804
  Receipt Date: 20180804
  Transmission Date: 20181010
  Serious: Yes (Hospitalization, Disabling)
  Sender: FDA-Public Use
  Company Number: CH-AMGEN-CHESP2018106364

PATIENT
  Age: 51 Year
  Sex: Female

DRUGS (15)
  1. ELTROXIN LF [Concomitant]
     Dosage: 0.01 MG, 1X/DAY (1?0?0?0)
  2. QLAIRA [Concomitant]
     Active Substance: DIENOGEST\ESTRADIOL VALERATE
     Dosage: 1 DF, 1X/DAY (1?0?0?0)
  3. ENBREL [Suspect]
     Active Substance: ETANERCEPT
     Indication: SERONEGATIVE ARTHRITIS
     Dosage: UNK (FORTNIGHTLY)
     Route: 065
     Dates: start: 20180523
  4. CONDROSULF [Concomitant]
     Active Substance: SODIUM CHONDROITIN SULFATE
     Dosage: 800 MG, 1X/DAY (1?0?0?0)
  5. XYZAL [Concomitant]
     Active Substance: LEVOCETIRIZINE DIHYDROCHLORIDE
     Dosage: 5 MG, 1X/DAY (1?0?0?0)
     Route: 048
  6. CALCIMAGON D3 [Concomitant]
     Active Substance: CALCIUM\CHOLECALCIFEROL
     Dosage: 1000 MG /800U, 1X/DAY (0?1?0?0)
  7. PANTOPRAZOLE SODIUM. [Concomitant]
     Active Substance: PANTOPRAZOLE SODIUM
     Dosage: 40 MG, 1X/DAY (1?0?0?0)
  8. IMODIUM [Concomitant]
     Active Substance: LOPERAMIDE HYDROCHLORIDE
     Dosage: 2MG AS NECESSARY (IN RESERVE)
  9. AMLODIPINE [Concomitant]
     Active Substance: AMLODIPINE BESYLATE
     Dosage: 2.5 MG, 1X/DAY (5MG TABL: 0?0?0.5?0)
  10. MAGNESIOCARD [Concomitant]
     Active Substance: MAGNESIUM ASPARTATE HYDROCHLORIDE
     Dosage: 10 MMOL, 1X/DAY (0?0?1?0)
  11. ELTROXIN LF [Concomitant]
     Dosage: 0.025 MG, 1X/DAY (0.05 TABL. 0.5?0?0?0)
  12. METO ZEROK [Concomitant]
     Active Substance: METOPROLOL SUCCINATE
     Dosage: 50 MG, 1X/DAY (1?0?0?0)
  13. QUIRIL COMP [Concomitant]
     Dosage: 20/12.5 MG (1?0?0?0)
  14. ROCALTROL [Concomitant]
     Active Substance: CALCITRIOL
     Dosage: 0.25 UG, 1X/DAY (1?0?0?0)
  15. SPIRICORT [Concomitant]
     Active Substance: PREDNISOLONE
     Dosage: 5 MG, 1X/DAY (1?0?0?0)
     Route: 048

REACTIONS (3)
  - Abdominal pain [Recovered/Resolved with Sequelae]
  - Product use in unapproved indication [Unknown]
  - Diarrhoea [Recovered/Resolved with Sequelae]

NARRATIVE: CASE EVENT DATE: 20180523
